FAERS Safety Report 20579433 (Version 1)
Quarter: 2022Q1

REPORT INFORMATION
  Report Type: Spontaneous
  Country: US (occurrence: US)
  Receive Date: 20220310
  Receipt Date: 20220310
  Transmission Date: 20220423
  Serious: Yes (Other)
  Sender: FDA-Public Use
  Company Number: US-PFIZER INC-202200358755

PATIENT
  Age: 26 Year
  Sex: Female
  Weight: 55.782 kg

DRUGS (2)
  1. PROTONIX [Suspect]
     Active Substance: PANTOPRAZOLE SODIUM
     Indication: Reflux gastritis
     Dosage: UNK (TAKES THE PRODUCT EVERY DAY AT ABOUT THE SAME TIME AROUND 9 AM AND THEN BY NOON)
  2. PROTONIX [Suspect]
     Active Substance: PANTOPRAZOLE SODIUM
     Indication: Reflux laryngitis
     Dosage: 40 MG, 1X/DAY
     Dates: start: 20220219

REACTIONS (6)
  - Headache [Unknown]
  - Dizziness [Unknown]
  - Nausea [Unknown]
  - Fatigue [Unknown]
  - Stress [Unknown]
  - Off label use [Unknown]
